FAERS Safety Report 10934686 (Version 1)
Quarter: 2015Q1

REPORT INFORMATION
  Report Type: Report from Study
  Country: CZ (occurrence: CZ)
  Receive Date: 20150320
  Receipt Date: 20150320
  Transmission Date: 20150721
  Serious: Yes (Death)
  Sender: FDA-Public Use
  Company Number: CZ-PFIZER INC-2015096907

PATIENT
  Sex: Male

DRUGS (1)
  1. INLYTA [Suspect]
     Active Substance: AXITINIB
     Indication: RENAL CELL CARCINOMA
     Dosage: 5 MG, 2X/DAY (MORNING AND EVENING)
     Route: 048
     Dates: start: 201411

REACTIONS (1)
  - Death [Fatal]

NARRATIVE: CASE EVENT DATE: 201501
